FAERS Safety Report 9250294 (Version 1)
Quarter: 2013Q1

REPORT INFORMATION
  Report Type: Spontaneous
  Country: US (occurrence: None)
  Receive Date: 20130305
  Receipt Date: 20130305
  Transmission Date: 20140127
  Serious: Yes (Other)
  Sender: FDA-Public Use
  Company Number: 163-21880-12040624

PATIENT
  Age: 77 Year
  Sex: Male

DRUGS (7)
  1. REVLIMID [Suspect]
     Indication: PLASMA CELL MYELOMA
     Dosage: 10 MG, DAYS 1-21
     Route: 048
     Dates: start: 200911
  2. ZOMETA (ZOLEDRONIC ACID) [Suspect]
  3. DECADRON (DEXAMETHASONE) [Suspect]
  4. LISINOPRIL (LISINOPRIL) [Suspect]
  5. ATENOLOL (ATENOLOL) [Suspect]
  6. COMBIVENT (COMBIVENT) [Suspect]
  7. OMEGA 3 (FISH OIL) [Suspect]

REACTIONS (1)
  - Blood immunoglobulin G increased [None]
